FAERS Safety Report 5048504-5 (Version None)
Quarter: 2006Q3

REPORT INFORMATION
  Report Type: 
  Country: None (occurrence: None)
  Receive Date: 20060705
  Receipt Date: 20060626
  Transmission Date: 20061208
  Serious: Yes (Hospitalization)
  Sender: FDA-Public Use
  Company Number: 2006-06-1878

PATIENT
  Age: 58 Year
  Sex: Male

DRUGS (2)
  1. PEG-INTRON [Suspect]
     Indication: HEPATITIS C
     Dosage: 100 MCG QW SUBCUTANEOUS
     Route: 058
     Dates: start: 20060407
  2. REBETOL [Suspect]
     Indication: HEPATITIS C
     Dosage: 400 MG ORAL
     Route: 048
     Dates: start: 20060407

REACTIONS (2)
  - FALL [None]
  - LOWER LIMB FRACTURE [None]
